FAERS Safety Report 15657076 (Version 1)
Quarter: 2018Q4

REPORT INFORMATION
  Report Type: Spontaneous
  Country: US (occurrence: US)
  Receive Date: 20181115
  Receipt Date: 20181115
  Transmission Date: 20190205
  Serious: Yes (Hospitalization)
  Sender: FDA-Public Use
  Company Number: None

PATIENT
  Age: 84 Year
  Sex: Male

DRUGS (1)
  1. ZYTIGA [Suspect]
     Active Substance: ABIRATERONE ACETATE
     Indication: PROSTATE CANCER
     Route: 048
     Dates: start: 20181018, end: 20181031

REACTIONS (7)
  - Vision blurred [None]
  - Full blood count decreased [None]
  - Heart rate irregular [None]
  - Pneumonia [None]
  - Fatigue [None]
  - Mobility decreased [None]
  - Decreased appetite [None]

NARRATIVE: CASE EVENT DATE: 20181031
